FAERS Safety Report 12009229 (Version 1)
Quarter: 2016Q1

REPORT INFORMATION
  Report Type: Spontaneous
  Country: US (occurrence: None)
  Receive Date: 20160204
  Receipt Date: 20160204
  Transmission Date: 20160526
  Serious: No
  Sender: FDA-Public Use
  Company Number: None

PATIENT
  Age: 59 Year
  Sex: Male

DRUGS (6)
  1. FLOMAX [Concomitant]
     Active Substance: TAMSULOSIN HYDROCHLORIDE
  2. HCTZ [Concomitant]
     Active Substance: HYDROCHLOROTHIAZIDE
  3. IMURAN [Concomitant]
     Active Substance: AZATHIOPRINE
  4. MULTIVITAMIN [Concomitant]
     Active Substance: VITAMINS
  5. HUMIRA [Suspect]
     Active Substance: ADALIMUMAB
  6. DELZICOL [Concomitant]
     Active Substance: MESALAMINE

REACTIONS (2)
  - Drug dose omission [None]
  - Malaise [None]
